FAERS Safety Report 24247201 (Version 1)
Quarter: 2024Q3

REPORT INFORMATION
  Report Type: Spontaneous
  Country: US (occurrence: US)
  Receive Date: 20240826
  Receipt Date: 20240826
  Transmission Date: 20241016
  Serious: No
  Sender: ALCON
  Company Number: US-ALCON LABORATORIES-ALC2024US002977

PATIENT
  Sex: Male

DRUGS (4)
  1. DUPIXENT [Suspect]
     Active Substance: DUPILUMAB
     Indication: Dermatitis atopic
     Dosage: LOADING DOSC OF 600 MG IX (ONCE) FOLLOWCD BY DOSE OF 300 MG QC) W (EVERY OTHER WEEK)
     Route: 058
     Dates: start: 202312, end: 20240112
  2. DUPIXENT [Suspect]
     Active Substance: DUPILUMAB
     Indication: Off label use
  3. ZADITOR [Suspect]
     Active Substance: KETOTIFEN FUMARATE
     Indication: Eye pruritus
     Dosage: UNK
     Route: 047
  4. SYSTANE (HYPROMELLOSE 2910 (4000 MPA.S)) [Concomitant]
     Active Substance: HYPROMELLOSE 2910 (4000 MPA.S)
     Indication: Eye pruritus
     Route: 047

REACTIONS (2)
  - Condition aggravated [Unknown]
  - Eye pain [Unknown]
